FAERS Safety Report 7643910-4 (Version None)
Quarter: 2011Q3

REPORT INFORMATION
  Report Type: 
  Country: None (occurrence: None)
  Receive Date: 20110729
  Receipt Date: 20110414
  Transmission Date: 20111222
  Serious: No
  Sender: FDA-Public Use
  Company Number: US-GLAXOSMITHKLINE-A0924104A

PATIENT
  Age: 58 Year
  Sex: Female

DRUGS (1)
  1. IMITREX [Suspect]
     Dosage: 100MG UNKNOWN
     Route: 065
     Dates: start: 20030701

REACTIONS (1)
  - VISION BLURRED [None]
